FAERS Safety Report 9339047 (Version 2)
Quarter: 2013Q2

REPORT INFORMATION
  Report Type: Spontaneous
  Country: US (occurrence: None)
  Receive Date: 20130530
  Receipt Date: 20130601
  Transmission Date: 20140414
  Serious: Yes (Hospitalization)
  Sender: FDA-Public Use
  Company Number: 2013PROUSA02626

PATIENT
  Age: 75 Year
  Sex: Male
  Weight: 78.3 kg

DRUGS (18)
  1. PROVENGE (SIPULEUCEL-T) SUSPENSION, 250ML [Suspect]
     Indication: PROSTATE CANCER METASTATIC
     Dosage: SINGLE
     Route: 042
     Dates: start: 20130128, end: 20130128
  2. WARFARIN (WARFARIN SODIUM) (TABLET) [Concomitant]
  3. XOPENEX (LEVOSALBUTAMOL HYDROCHLORIDE) [Concomitant]
  4. PREDNISONE (PREDNISONE) [Concomitant]
  5. PULMICORT RESPULES (BUDESONIDE) [Concomitant]
  6. ROPINIROLE (ROPINIROLE) [Concomitant]
  7. FINASTERIDE (FINASTERIDE) [Concomitant]
  8. DETROL LA (TOLTERODINE L-TARTRATE) [Concomitant]
  9. ALFUZOSIN (ALFUZOSIN) [Concomitant]
  10. POTASSIUM CHLORIDE (POTASSIUM CHLORIDE) [Concomitant]
  11. PROTONIX (PANTOPRAZOLE SODIUM SESQUIHYDRATE) [Concomitant]
  12. MULTAQ (DRONEDARONE HYDROCHLORIDE) [Concomitant]
  13. FLUTICASONE (FLUTICASONE PROPIONATE) [Concomitant]
  14. LIPITOR (ATORVASTATIN CALCIUM) [Concomitant]
  15. SINGULAIR [Concomitant]
  16. LUPRON (LEUPRORELIN ACETATE) [Concomitant]
  17. ABIRATERONE (ABIRATERONE ACETATE) [Concomitant]
  18. DENOSUMAB (DENOSUMAB) (RANMARK)) [Concomitant]

REACTIONS (7)
  - Spinal column stenosis [None]
  - Compression fracture [None]
  - Dysphonia [None]
  - Fatigue [None]
  - Lumbar vertebral fracture [None]
  - Metastases to bone [None]
  - Malignant neoplasm progression [None]
